FAERS Safety Report 5970996-5 (Version None)
Quarter: 2008Q4

REPORT INFORMATION
  Report Type: 
  Country: None (occurrence: None)
  Receive Date: 20081128
  Receipt Date: 20081124
  Transmission Date: 20090506
  Serious: Yes (Death)
  Sender: FDA-Public Use
  Company Number: PHEH2008US10586

PATIENT
  Sex: Female

DRUGS (13)
  1. FEMARA [Suspect]
     Indication: BREAST CANCER
     Dosage: 2.5 MG, QD
     Route: 048
     Dates: start: 20050101, end: 20081101
  2. GABAPENTIN [Concomitant]
     Indication: BREAST CANCER
  3. MEGACE [Concomitant]
  4. LIPITOR [Concomitant]
  5. MECLIZINE [Concomitant]
  6. NEURONTIN [Concomitant]
  7. FENTANYL [Concomitant]
  8. ZOLOFT [Concomitant]
  9. MORPHINE [Concomitant]
  10. DILAUDID [Concomitant]
  11. CLARITIN [Concomitant]
  12. SENNA [Concomitant]
  13. MIRALAX [Concomitant]

REACTIONS (1)
  - MALIGNANT NEOPLASM PROGRESSION [None]
